FAERS Safety Report 8262741-8 (Version None)
Quarter: 2012Q2

REPORT INFORMATION
  Report Type: 
  Country: None (occurrence: None)
  Receive Date: 20120405
  Receipt Date: 20120330
  Transmission Date: 20120825
  Serious: Yes (Other)
  Sender: FDA-Public Use
  Company Number: US-BAYER-2012-031664

PATIENT
  Age: 75 Year
  Sex: Male
  Weight: 100 kg

DRUGS (6)
  1. ALEVE (CAPLET) [Suspect]
     Indication: ARTHRITIS
     Dosage: 1-2 TABLETS QD
     Route: 048
     Dates: start: 20090101
  2. ALEVE (CAPLET) [Suspect]
     Dosage: 1-2 TABLETS BID
     Route: 048
  3. LAMICTAL [Concomitant]
  4. FLOMAX [Concomitant]
  5. KLONOPIN [Concomitant]
  6. TYLENOL TAB [Concomitant]
     Dosage: UNK UNK, PRN

REACTIONS (1)
  - HAEMATOCHEZIA [None]
